FAERS Safety Report 11967279 (Version 2)
Quarter: 2016Q2

REPORT INFORMATION
  Report Type: Spontaneous
  Country: US (occurrence: US)
  Receive Date: 20160127
  Receipt Date: 20160405
  Transmission Date: 20160815
  Serious: Yes (Hospitalization)
  Sender: FDA-Public Use
  Company Number: US-BAYER-2016-015535

PATIENT
  Age: 27 Year
  Sex: Female

DRUGS (2)
  1. CELEXA [Suspect]
     Active Substance: CITALOPRAM HYDROBROMIDE
  2. MIRENA [Suspect]
     Active Substance: LEVONORGESTREL
     Indication: CONTRACEPTION
     Dosage: 20 MCG/24HR, CONT
     Route: 015
     Dates: start: 20111013, end: 20121109

REACTIONS (3)
  - Pain [None]
  - Uterine perforation [None]
  - Device issue [None]

NARRATIVE: CASE EVENT DATE: 20121105
